FAERS Safety Report 21151936 (Version 1)
Quarter: 2022Q3

REPORT INFORMATION
  Report Type: Spontaneous
  Country: US (occurrence: US)
  Receive Date: 20220730
  Receipt Date: 20220730
  Transmission Date: 20221027
  Serious: No
  Sender: FDA-Public Use
  Company Number: US-SA-SAC20220721000656

PATIENT
  Sex: Male
  Weight: 94 kg

DRUGS (7)
  1. DUPIXENT [Suspect]
     Active Substance: DUPILUMAB
     Indication: Nasal polyps
     Dosage: 300 MG, QOW
     Route: 058
  2. THEOPHYLLINE [Concomitant]
     Active Substance: THEOPHYLLINE
     Dosage: UNK UNK, QD
  3. VITAMIN C [Concomitant]
     Active Substance: ASCORBIC ACID
  4. VITAMIN D NOS [Concomitant]
     Active Substance: VITAMIN D NOS
  5. ZINC [Concomitant]
     Active Substance: ZINC
  6. RHINOCORT ALLERGY [Concomitant]
     Active Substance: BUDESONIDE
  7. CLARITIN-D 12 HOUR [Concomitant]
     Active Substance: LORATADINE\PSEUDOEPHEDRINE SULFATE
     Dosage: UNK, Q12H

REACTIONS (1)
  - Product use in unapproved indication [Unknown]
